FAERS Safety Report 10963451 (Version 1)
Quarter: 2015Q1

REPORT INFORMATION
  Report Type: Spontaneous
  Country: US (occurrence: None)
  Receive Date: 20150326
  Receipt Date: 20150326
  Transmission Date: 20150721
  Serious: Yes (Other)
  Sender: FDA-Public Use
  Company Number: 201503131

PATIENT
  Age: 45 Year
  Sex: Male
  Weight: 70.31 kg

DRUGS (4)
  1. LASIX [Concomitant]
     Active Substance: FUROSEMIDE
  2. ALDACTONE [Concomitant]
     Active Substance: SPIRONOLACTONE
  3. EDEX [Suspect]
     Active Substance: ALPROSTADIL
     Indication: ERECTILE DYSFUNCTION
     Dosage: INTRACAVERNOUS?
     Route: 011
     Dates: start: 2012
  4. COREG [Concomitant]
     Active Substance: CARVEDILOL

REACTIONS (4)
  - Product package associated injury [None]
  - Penile haematoma [None]
  - Needle issue [None]
  - Vessel puncture site haematoma [None]

NARRATIVE: CASE EVENT DATE: 20150314
